FAERS Safety Report 21577034 (Version 1)
Quarter: 2022Q4

REPORT INFORMATION
  Report Type: 
  Country: GB (occurrence: GB)
  Receive Date: 20221110
  Receipt Date: 20221110
  Transmission Date: 20230113
  Serious: Yes (Other)
  Sender: FDA-Public Use
  Company Number: GB-MHRA-MED-202210172106302210-JWBNT

PATIENT
  Age: 65 Year
  Sex: Female

DRUGS (2)
  1. ROSUVASTATIN CALCIUM [Suspect]
     Active Substance: ROSUVASTATIN CALCIUM
     Indication: Blood cholesterol increased
     Dosage: FOR SOME TIME
  2. ROSUVASTATIN CALCIUM [Suspect]
     Active Substance: ROSUVASTATIN CALCIUM
     Dosage: AT NIGHT, FOR APPROXIMATELY THREE WEEKS.

REACTIONS (5)
  - Chest pain [Recovered/Resolved]
  - Fatigue [Recovered/Resolved]
  - Yellow skin [Recovered/Resolved]
  - Myalgia [Recovered/Resolved]
  - Arthralgia [Recovered/Resolved]

NARRATIVE: CASE EVENT DATE: 20221010
